FAERS Safety Report 20984328 (Version 1)
Quarter: 2022Q2

REPORT INFORMATION
  Report Type: Spontaneous
  Country: US (occurrence: None)
  Receive Date: 20220621
  Receipt Date: 20220621
  Transmission Date: 20220721
  Serious: No
  Sender: FDA-Public Use
  Company Number: US-ROCHE-2888239

PATIENT
  Sex: Male
  Weight: 86.260 kg

DRUGS (2)
  1. TECENTRIQ [Suspect]
     Active Substance: ATEZOLIZUMAB
     Indication: Hepatocellular carcinoma
     Dosage: FOR 21 DAYS UNINTERRUPTED
     Route: 041
     Dates: start: 20210512, end: 20210512
  2. AVASTIN [Suspect]
     Active Substance: BEVACIZUMAB
     Indication: Hepatocellular carcinoma
     Dosage: FOR 21 DAYS UNINTERRUPTED
     Route: 042
     Dates: start: 20210512, end: 20210512

REACTIONS (2)
  - Hepatic enzyme increased [Unknown]
  - General physical health deterioration [Unknown]
